FAERS Safety Report 12923108 (Version 1)
Quarter: 2016Q4

REPORT INFORMATION
  Report Type: Other
  Country: ES (occurrence: ES)
  Receive Date: 20161108
  Receipt Date: 20161108
  Transmission Date: 20170207
  Serious: Yes (Hospitalization, Other)
  Sender: FDA-Public Use
  Company Number: ES-CANTON LABORATORIES, LLC-1059350

PATIENT
  Age: 61 Year
  Sex: Female

DRUGS (7)
  1. NAPROSYN [Suspect]
     Active Substance: NAPROXEN
     Indication: ARTHRALGIA
  2. METFORMIN [Suspect]
     Active Substance: METFORMIN HYDROCHLORIDE
  3. ROFECOXIB [Suspect]
     Active Substance: ROFECOXIB
  4. LEVOTHYROXINE. [Suspect]
     Active Substance: LEVOTHYROXINE
  5. DICLOFENAC SODIUM. [Suspect]
     Active Substance: DICLOFENAC SODIUM
  6. CAPTOPRIL. [Suspect]
     Active Substance: CAPTOPRIL
  7. GLIBENCLAMIDE [Suspect]
     Active Substance: GLYBURIDE

REACTIONS (6)
  - Metabolic acidosis [Unknown]
  - Lactic acidosis [Recovered/Resolved]
  - Drug administration error [Recovered/Resolved]
  - Acute kidney injury [Unknown]
  - Contraindicated product administered [Recovered/Resolved]
  - Labelled drug-disease interaction medication error [Recovered/Resolved]
